FAERS Safety Report 8194147 (Version 13)
Quarter: 2018Q1

REPORT INFORMATION
  Report Type: Report from Study
  Country: US (occurrence: US)
  Receive Date: 20111021
  Receipt Date: 20180116
  Transmission Date: 20180509
  Serious: Yes (Hospitalization, Congenital Anomaly)
  Sender: FDA-Public Use
  Company Number: US-ROCHE-GNE323488

PATIENT
  Sex: Male

DRUGS (1)
  1. OMALIZUMAB. [Suspect]
     Active Substance: OMALIZUMAB
     Indication: PRODUCT USED FOR UNKNOWN INDICATION
     Route: 064

REACTIONS (4)
  - Bronchiolitis [Recovered/Resolved]
  - Maternal exposure timing unspecified [Unknown]
  - Bronchomalacia [Not Recovered/Not Resolved]
  - Laryngeal cleft [Recovered/Resolved]

NARRATIVE: CASE EVENT DATE: 20110321
